FAERS Safety Report 18375757 (Version 2)
Quarter: 2021Q1

REPORT INFORMATION
  Report Type: Spontaneous
  Country: US (occurrence: US)
  Receive Date: 20201013
  Receipt Date: 20210112
  Transmission Date: 20210419
  Serious: No
  Sender: FDA-Public Use
  Company Number: US-BAYER-2020-217817

PATIENT
  Age: 65 Year
  Sex: Female
  Weight: 43.08 kg

DRUGS (4)
  1. GADAVIST [Suspect]
     Active Substance: GADOBUTROL
     Indication: GASTROINTESTINAL DISORDER
     Dosage: 5.5 ML, ONCE
     Route: 042
     Dates: start: 20200928, end: 20200928
  2. GADAVIST [Suspect]
     Active Substance: GADOBUTROL
     Indication: MAGNETIC RESONANCE IMAGING ABDOMINAL
  3. BARIUM SULFATE [Concomitant]
     Active Substance: BARIUM SULFATE
     Dosage: GIVEN 2 BOTTLES FOR STUDY TO DRINK PRIOR TO SCAN
     Route: 048
  4. GADAVIST [Suspect]
     Active Substance: GADOBUTROL
     Indication: ABDOMINAL PAIN

REACTIONS (1)
  - Urticaria [Recovered/Resolved]

NARRATIVE: CASE EVENT DATE: 20200928
